FAERS Safety Report 9840208 (Version 3)
Quarter: 2020Q2

REPORT INFORMATION
  Report Type: Spontaneous
  Country: FR (occurrence: FR)
  Receive Date: 20140124
  Receipt Date: 20200606
  Transmission Date: 20200714
  Serious: Yes (Hospitalization, Other)
  Sender: FDA-Public Use
  Company Number: FR-ACCORD-021405

PATIENT
  Age: 69 Year
  Sex: Male

DRUGS (2)
  1. CREON [Concomitant]
     Active Substance: PANCRELIPASE AMYLASE\PANCRELIPASE LIPASE\PANCRELIPASE PROTEASE
     Indication: PANCREATECTOMY
  2. GEMCITABINE/GEMCITABINE HYDROCHLORIDE [Suspect]
     Active Substance: GEMCITABINE\GEMCITABINE HYDROCHLORIDE
     Indication: ADENOCARCINOMA PANCREAS
     Dosage: TOOK LAST INFUSION - 2NDCYCLE,?3RD INFUSION
     Route: 041
     Dates: start: 2014

REACTIONS (12)
  - Muscular weakness [Recovered/Resolved]
  - Muscle disorder [Recovered/Resolved]
  - Motor dysfunction [Recovered/Resolved]
  - C-reactive protein increased [Recovered/Resolved]
  - Muscle necrosis [Recovered/Resolved]
  - Erythema [Recovered/Resolved]
  - Angiopathy [Recovered/Resolved]
  - Pain in extremity [Recovered/Resolved]
  - Rhabdomyolysis [Recovered/Resolved]
  - Blood creatine phosphokinase increased [Recovered/Resolved]
  - Muscle oedema [Recovered/Resolved]
  - Myopathy [Recovered/Resolved]

NARRATIVE: CASE EVENT DATE: 2014
